FAERS Safety Report 17724141 (Version 1)
Quarter: 2020Q2

REPORT INFORMATION
  Report Type: Report from Study
  Country: IN (occurrence: IN)
  Receive Date: 20200429
  Receipt Date: 20200429
  Transmission Date: 20200714
  Serious: Yes (Other)
  Sender: FDA-Public Use
  Company Number: NVSC2020IN026721

PATIENT
  Age: 49 Year
  Sex: Male
  Weight: 70 kg

DRUGS (4)
  1. GALVUS MET [Suspect]
     Active Substance: METFORMIN HYDROCHLORIDE\VILDAGLIPTIN
     Indication: DIABETES MELLITUS
     Dosage: 1 DF, BID (1-0-1) (50MG VILDAGLIPTIN AND 500MG METFORMIN) POST MEAL, SINCE 10 YEARS
     Route: 048
  2. GLIMESTAR [Concomitant]
     Indication: DIABETES MELLITUS
     Dosage: 1 TABLET, QD (1-0-0) POST MEAL (CONCETRATION: 3)
     Route: 048
  3. TELISTA-H [Concomitant]
     Active Substance: HYDROCHLOROTHIAZIDE\TELMISARTAN
     Indication: HYPERTENSION
     Dosage: 1 TABLET, QD (1-0-0) POST MEAL (CONCENTRATION: 40)
     Route: 048
  4. GLIMESTAR [Concomitant]
     Dosage: 1 TABLET, QD (0-0-1) POST MEAL (CONCETRATION: 2)
     Route: 048

REACTIONS (7)
  - Weight decreased [Unknown]
  - Blood glucose fluctuation [Unknown]
  - Furuncle [Not Recovered/Not Resolved]
  - Blood glucose increased [Not Recovered/Not Resolved]
  - Hunger [Not Recovered/Not Resolved]
  - Impaired healing [Not Recovered/Not Resolved]
  - Hyperglycaemia [Unknown]

NARRATIVE: CASE EVENT DATE: 20200105
